FAERS Safety Report 14312205 (Version 1)
Quarter: 2017Q4

REPORT INFORMATION
  Report Type: Spontaneous
  Country: US (occurrence: US)
  Receive Date: 20171221
  Receipt Date: 20171221
  Transmission Date: 20180321
  Serious: Yes (Other)
  Sender: FDA-Public Use
  Company Number: US-CIPLA (EU) LIMITED-2017US26922

PATIENT

DRUGS (4)
  1. TEMOZOLOMIDE. [Suspect]
     Active Substance: TEMOZOLOMIDE
     Indication: GLIOBLASTOMA MULTIFORME
     Dosage: UNK
     Route: 065
  2. BICNU [Suspect]
     Active Substance: CARMUSTINE
     Indication: GLIOBLASTOMA MULTIFORME
     Dosage: UNK
     Route: 065
  3. BEVACIZUMAB. [Suspect]
     Active Substance: BEVACIZUMAB
     Indication: GLIOBLASTOMA MULTIFORME
     Dosage: 10 MG/M2, EVERY 2 WEEKS
     Route: 065
  4. IRINOTECAN [Suspect]
     Active Substance: IRINOTECAN
     Indication: GLIOBLASTOMA MULTIFORME
     Dosage: 125-250 MG/M2 EVERY 2 WEEKS
     Route: 065

REACTIONS (4)
  - Disease recurrence [Unknown]
  - Haemorrhage intracranial [Unknown]
  - Disease progression [Unknown]
  - Treatment failure [Unknown]
